FAERS Safety Report 9646546 (Version 1)
Quarter: 2013Q4

REPORT INFORMATION
  Report Type: Report from Study
  Country: US (occurrence: US)
  Receive Date: 20131025
  Receipt Date: 20131025
  Transmission Date: 20140711
  Serious: Yes (Hospitalization, Other)
  Sender: FDA-Public Use
  Company Number: US-ABBVIE-13P-163-1159019-00

PATIENT
  Age: 30 Year
  Sex: Female

DRUGS (9)
  1. HUMIRA [Suspect]
     Indication: CROHN^S DISEASE
     Dates: start: 201208, end: 201210
  2. HUMIRA [Suspect]
     Dosage: LOADING DOSE
     Dates: start: 201303, end: 201303
  3. HUMIRA [Suspect]
     Dosage: DAY 15
     Dates: start: 201303, end: 201303
  4. HUMIRA [Suspect]
     Dates: start: 201304
  5. VANCOMYCIN [Suspect]
     Indication: ABDOMINAL INFECTION
  6. PENTASA [Concomitant]
     Indication: PRODUCT USED FOR UNKNOWN INDICATION
     Dates: end: 201210
  7. PREDNISONE [Concomitant]
     Indication: PRODUCT USED FOR UNKNOWN INDICATION
     Dosage: TAPERED
  8. 6MP [Concomitant]
     Indication: CROHN^S DISEASE
     Dosage: 70MG
     Dates: start: 201303
  9. FAMOTADINE [Concomitant]
     Indication: GASTROOESOPHAGEAL REFLUX DISEASE

REACTIONS (20)
  - Intestinal obstruction [Unknown]
  - Intestinal obstruction [Unknown]
  - Intestinal obstruction [Unknown]
  - Intestinal obstruction [Unknown]
  - Intestinal obstruction [Unknown]
  - Septic shock [Unknown]
  - Fistula [Unknown]
  - Rectal perforation [Unknown]
  - Rectal perforation [Unknown]
  - Wound dehiscence [Unknown]
  - Intestinal perforation [Unknown]
  - Infection [Unknown]
  - Pulmonary thrombosis [Unknown]
  - Red man syndrome [Recovered/Resolved]
  - Muscle spasms [Not Recovered/Not Resolved]
  - Nausea [Not Recovered/Not Resolved]
  - Abdominal pain [Not Recovered/Not Resolved]
  - Anaemia [Not Recovered/Not Resolved]
  - Crohn^s disease [Not Recovered/Not Resolved]
  - Diarrhoea [Not Recovered/Not Resolved]
